FAERS Safety Report 11862752 (Version 3)
Quarter: 2016Q3

REPORT INFORMATION
  Report Type: Spontaneous
  Country: CA (occurrence: CA)
  Receive Date: 20151223
  Receipt Date: 20160728
  Transmission Date: 20161109
  Serious: Yes (Other)
  Sender: FDA-Public Use
  Company Number: CA-AMGEN-CANSP2015136214

PATIENT
  Age: 61 Year
  Sex: Female

DRUGS (9)
  1. PREDNISONE. [Concomitant]
     Active Substance: PREDNISONE
     Dosage: UNK
  2. ENBREL [Suspect]
     Active Substance: ETANERCEPT
     Indication: RHEUMATOID ARTHRITIS
     Dosage: UNK
     Route: 065
     Dates: start: 2006, end: 2015
  3. VOLTAREN [Concomitant]
     Active Substance: DICLOFENAC SODIUM
  4. NAPROXEN. [Concomitant]
     Active Substance: NAPROXEN
  5. HUMIRA [Concomitant]
     Active Substance: ADALIMUMAB
  6. METHOTREXATE SODIUM. [Suspect]
     Active Substance: METHOTREXATE SODIUM
     Indication: RHEUMATOID ARTHRITIS
     Dosage: UNK
     Route: 065
  7. MELOXICAM. [Concomitant]
     Active Substance: MELOXICAM
  8. DILAUDID [Concomitant]
     Active Substance: HYDROMORPHONE HYDROCHLORIDE
     Dosage: UNK
  9. ORENCIA [Suspect]
     Active Substance: ABATACEPT
     Indication: RHEUMATOID ARTHRITIS
     Dosage: UNK
     Route: 065
     Dates: start: 201508, end: 201512

REACTIONS (11)
  - Unevaluable event [Unknown]
  - C-reactive protein abnormal [Unknown]
  - Hip fracture [Unknown]
  - Arthropathy [Unknown]
  - Drug effect decreased [Unknown]
  - Joint swelling [Unknown]
  - Fracture [Unknown]
  - Drug ineffective [Unknown]
  - Nausea [Unknown]
  - Knee arthroplasty [Unknown]
  - Fall [Unknown]

NARRATIVE: CASE EVENT DATE: 2015
